FAERS Safety Report 23060931 (Version 2)
Quarter: 2024Q1

REPORT INFORMATION
  Report Type: Other
  Country: CA (occurrence: None)
  Receive Date: 20231012
  Receipt Date: 20240213
  Transmission Date: 20240409
  Serious: Yes (Other)
  Sender: FDA-Public Use
  Company Number: CA-ROCHE-3418764

PATIENT
  Age: 66 Year
  Sex: Male
  Weight: 73.5 kg

DRUGS (16)
  1. ACTEMRA [Suspect]
     Active Substance: TOCILIZUMAB
     Indication: Rheumatoid arthritis
     Dosage: DOSE: 8 MG/KG
     Route: 042
     Dates: start: 20190401, end: 20230111
  2. ACTEMRA [Suspect]
     Active Substance: TOCILIZUMAB
     Route: 042
     Dates: start: 20230412
  3. ACTEMRA [Suspect]
     Active Substance: TOCILIZUMAB
     Route: 042
     Dates: end: 2023
  4. ACTEMRA [Suspect]
     Active Substance: TOCILIZUMAB
     Route: 042
     Dates: start: 2023
  5. ADVAIR DISKUS [Concomitant]
     Active Substance: FLUTICASONE PROPIONATE\SALMETEROL XINAFOATE
     Dosage: 250/50 MCG
     Route: 055
  6. RABEPRAZOLE [Concomitant]
     Active Substance: RABEPRAZOLE
     Route: 048
  7. ALBUTEROL [Concomitant]
     Active Substance: ALBUTEROL
     Route: 055
  8. TYLENOL EXTRA STRENGTH [Concomitant]
     Active Substance: ACETAMINOPHEN
     Route: 048
  9. POTASSIUM CHLORIDE [Concomitant]
     Active Substance: POTASSIUM CHLORIDE
     Dosage: DOSE 20 MEQ
     Route: 048
  10. INDAPAMIDE\PERINDOPRIL ERBUMINE [Concomitant]
     Active Substance: INDAPAMIDE\PERINDOPRIL ERBUMINE
     Dosage: 2 TAB OD
     Route: 048
  11. ROSUVASTATIN [Concomitant]
     Active Substance: ROSUVASTATIN
     Route: 048
  12. BISOPROLOL [Concomitant]
     Active Substance: BISOPROLOL\BISOPROLOL FUMARATE
     Dosage: 1/2 TAB OD
     Route: 048
  13. TICAGRELOR [Concomitant]
     Active Substance: TICAGRELOR
  14. SUCRALFATE [Concomitant]
     Active Substance: SUCRALFATE
  15. ONDANSETRON [Concomitant]
     Active Substance: ONDANSETRON
     Dosage: Q6H PRN
  16. ASPIRIN [Concomitant]
     Active Substance: ASPIRIN

REACTIONS (4)
  - Aortic aneurysm [Recovering/Resolving]
  - Postoperative ileus [Unknown]
  - Pneumonia [Recovered/Resolved]
  - Vomiting [Recovered/Resolved]

NARRATIVE: CASE EVENT DATE: 20230802
